FAERS Safety Report 14403340 (Version 3)
Quarter: 2018Q3

REPORT INFORMATION
  Report Type: Report from Study
  Country: DE (occurrence: DE)
  Receive Date: 20180117
  Receipt Date: 20180702
  Transmission Date: 20181010
  Serious: Yes (Hospitalization, Other)
  Sender: FDA-Public Use
  Company Number: DE-PFIZER INC-2018016774

PATIENT
  Sex: Female
  Weight: 62 kg

DRUGS (10)
  1. EXEMESTANE. [Suspect]
     Active Substance: EXEMESTANE
     Indication: BREAST CANCER METASTATIC
     Dosage: 25 MG, QD
     Route: 048
     Dates: start: 20140620, end: 20141020
  2. PANTOPRAZOLE [Concomitant]
     Active Substance: PANTOPRAZOLE
     Indication: PROPHYLAXIS
     Dosage: 40 MG, BID
     Route: 065
     Dates: start: 20141020, end: 20150212
  3. AFINITOR [Suspect]
     Active Substance: EVEROLIMUS
     Indication: BREAST CANCER METASTATIC
     Dosage: 5 MG, QD
     Route: 048
     Dates: start: 20140620, end: 20141020
  4. RAMIPRIL. [Concomitant]
     Active Substance: RAMIPRIL
     Dosage: 5 MG, QD
     Route: 065
     Dates: start: 2009
  5. PAMIDRONATE [Concomitant]
     Active Substance: PAMIDRONATE DISODIUM
     Indication: METASTASES TO BONE
     Dosage: 90 MG, EVERY 4 WEEKS
     Route: 042
     Dates: start: 20130213, end: 20150128
  6. TAVOR (LORAZEPAM) [Concomitant]
     Active Substance: LORAZEPAM
     Indication: INSOMNIA
     Dosage: 0.5 MG, QD
     Route: 065
     Dates: start: 20141020, end: 20150212
  7. NITRENDIPIN [Concomitant]
     Active Substance: NITRENDIPINE
     Dosage: 10 MG, QD
     Route: 065
     Dates: start: 2009
  8. NOVAMIN /06276704/ [Concomitant]
     Active Substance: METAMIZOLE SODIUM
     Indication: METASTASES TO BONE
     Dosage: 30 DRP, QID
     Route: 065
     Dates: start: 20141020, end: 20150212
  9. MACROGOL [Concomitant]
     Active Substance: POLYETHYLENE GLYCOLS
     Indication: CONSTIPATION
     Dosage: 1 DF, QD
     Route: 065
     Dates: start: 20141020, end: 20150212
  10. ENOXAPARIN [Concomitant]
     Active Substance: ENOXAPARIN
     Dosage: 0.4 ML, BID
     Route: 065
     Dates: start: 20141020

REACTIONS (21)
  - Anaemia [Recovered/Resolved]
  - Blood creatinine increased [Not Recovered/Not Resolved]
  - Acute kidney injury [Recovered/Resolved]
  - Ureteric stenosis [Recovered/Resolved]
  - Lung infiltration [Unknown]
  - Urinary tract infection enterococcal [Unknown]
  - Aortic arteriosclerosis [Unknown]
  - C-reactive protein increased [Unknown]
  - Bronchiectasis [Not Recovered/Not Resolved]
  - Kidney congestion [Recovered/Resolved]
  - Faeces discoloured [Recovered/Resolved]
  - General physical health deterioration [Recovered/Resolved]
  - Dyspnoea [Recovering/Resolving]
  - Generalised oedema [Recovered/Resolved]
  - Diverticulum [Unknown]
  - Lymphadenopathy [Unknown]
  - Gallbladder polyp [Not Recovered/Not Resolved]
  - Radiation pneumonitis [Recovered/Resolved]
  - Abdominal discomfort [Unknown]
  - Prothrombin time shortened [Recovered/Resolved]
  - Serum ferritin increased [Unknown]

NARRATIVE: CASE EVENT DATE: 20140827
